FAERS Safety Report 20673136 (Version 1)
Quarter: 2022Q2

REPORT INFORMATION
  Report Type: Report from Study
  Country: DE (occurrence: DE)
  Receive Date: 20220405
  Receipt Date: 20220405
  Transmission Date: 20220721
  Serious: Yes (Hospitalization, Other)
  Sender: FDA-Public Use
  Company Number: DE-BAXTER-2011BH018489

PATIENT
  Age: 53 Year
  Sex: Male
  Weight: 72 kg

DRUGS (44)
  1. ADVATE [Suspect]
     Active Substance: ANTIHEMOPHILIC FACTOR, HUMAN RECOMBINANT
     Indication: Spontaneous haematoma
     Dosage: 3000IU (INTERNATIONAL UNIT)
     Route: 042
     Dates: start: 2004
  2. ADVATE [Suspect]
     Active Substance: ANTIHEMOPHILIC FACTOR, HUMAN RECOMBINANT
     Indication: Spontaneous haematoma
     Dosage: 3000IU (INTERNATIONAL UNIT)
     Route: 042
     Dates: start: 2004
  3. ADVATE [Suspect]
     Active Substance: ANTIHEMOPHILIC FACTOR, HUMAN RECOMBINANT
     Indication: Spontaneous haematoma
     Dosage: 3000IU (INTERNATIONAL UNIT)
     Route: 042
     Dates: start: 2004
  4. ADVATE [Suspect]
     Active Substance: ANTIHEMOPHILIC FACTOR, HUMAN RECOMBINANT
     Indication: Haemarthrosis
     Dosage: 3000IU (INTERNATIONAL UNIT)
     Route: 042
     Dates: start: 20110208, end: 20110208
  5. ADVATE [Suspect]
     Active Substance: ANTIHEMOPHILIC FACTOR, HUMAN RECOMBINANT
     Indication: Haemarthrosis
     Dosage: 3000IU (INTERNATIONAL UNIT)
     Route: 042
     Dates: start: 20110208, end: 20110208
  6. ADVATE [Suspect]
     Active Substance: ANTIHEMOPHILIC FACTOR, HUMAN RECOMBINANT
     Indication: Haemarthrosis
     Dosage: 3000IU (INTERNATIONAL UNIT)
     Route: 042
     Dates: start: 20110208, end: 20110208
  7. ADVATE [Suspect]
     Active Substance: ANTIHEMOPHILIC FACTOR, HUMAN RECOMBINANT
     Indication: Factor VIII deficiency
     Dosage: 3000IU (INTERNATIONAL UNIT)AS NEEDED
     Route: 042
  8. ADVATE [Suspect]
     Active Substance: ANTIHEMOPHILIC FACTOR, HUMAN RECOMBINANT
     Indication: Factor VIII deficiency
     Dosage: 3000IU (INTERNATIONAL UNIT)AS NEEDED
     Route: 042
  9. ADVATE [Suspect]
     Active Substance: ANTIHEMOPHILIC FACTOR, HUMAN RECOMBINANT
     Indication: Factor VIII deficiency
     Dosage: 3000IU (INTERNATIONAL UNIT)AS NEEDED
     Route: 042
  10. ADVATE [Suspect]
     Active Substance: ANTIHEMOPHILIC FACTOR, HUMAN RECOMBINANT
     Indication: Prophylaxis
     Dosage: 5000IU (INTERNATIONAL UNIT)
     Route: 042
     Dates: start: 201102
  11. ADVATE [Suspect]
     Active Substance: ANTIHEMOPHILIC FACTOR, HUMAN RECOMBINANT
     Indication: Prophylaxis
     Dosage: 5000IU (INTERNATIONAL UNIT)
     Route: 042
     Dates: start: 201102
  12. ADVATE [Suspect]
     Active Substance: ANTIHEMOPHILIC FACTOR, HUMAN RECOMBINANT
     Indication: Prophylaxis
     Dosage: 5000IU (INTERNATIONAL UNIT)
     Route: 042
     Dates: start: 201102
  13. ADVATE [Suspect]
     Active Substance: ANTIHEMOPHILIC FACTOR, HUMAN RECOMBINANT
     Indication: Haemorrhage
     Dosage: 3000IU (INTERNATIONAL UNIT)
     Route: 042
     Dates: start: 20110810, end: 20110812
  14. ADVATE [Suspect]
     Active Substance: ANTIHEMOPHILIC FACTOR, HUMAN RECOMBINANT
     Indication: Haemorrhage
     Dosage: 3000IU (INTERNATIONAL UNIT)
     Route: 042
     Dates: start: 20110810, end: 20110812
  15. ADVATE [Suspect]
     Active Substance: ANTIHEMOPHILIC FACTOR, HUMAN RECOMBINANT
     Indication: Haemorrhage
     Dosage: 3000IU (INTERNATIONAL UNIT)
     Route: 042
     Dates: start: 20110810, end: 20110812
  16. KALETRA [Concomitant]
     Active Substance: LOPINAVIR\RITONAVIR
     Indication: HIV infection
     Dosage: 400/100 MG 1 PELLET
     Route: 048
     Dates: start: 20020101
  17. RAMIPRIL [Concomitant]
     Active Substance: RAMIPRIL
     Indication: Hypertonia
     Dosage: 2.5MILLIGRAM1X A DAY
     Route: 048
     Dates: start: 20090101
  18. PANTOZOL [Concomitant]
     Active Substance: PANTOPRAZOLE SODIUM
     Indication: Gastritis
     Dosage: 40MILLIGRAM1X A DAY
     Route: 048
     Dates: start: 20050101
  19. MOXIFLOXACIN HYDROCHLORIDE [Concomitant]
     Active Substance: MOXIFLOXACIN HYDROCHLORIDE
     Indication: Bronchitis
     Dosage: 400MILLIGRAM1X A DAY
     Route: 048
     Dates: start: 20110207, end: 20110221
  20. MOXIFLOXACIN HYDROCHLORIDE [Concomitant]
     Active Substance: MOXIFLOXACIN HYDROCHLORIDE
     Dosage: 400 UNK
     Route: 048
     Dates: start: 20110729
  21. TRUVADA [Concomitant]
     Active Substance: EMTRICITABINE\TENOFOVIR DISOPROXIL FUMARATE
     Indication: HIV infection
     Dosage: 200/245 MG
     Route: 048
     Dates: start: 20080316
  22. PEGYLATED RECOMBINANT FACTOR VIII [Concomitant]
     Indication: Product used for unknown indication
     Dosage: ONCE
     Dates: start: 20110201, end: 20110201
  23. INTERFERON [Concomitant]
     Active Substance: INTERFERON
     Indication: Hepatitis C
     Dosage: UNK
  24. RIBAVIRIN [Concomitant]
     Active Substance: RIBAVIRIN
     Indication: Hepatitis C
     Dosage: UNK
  25. METAMIZOLE [Concomitant]
     Active Substance: METAMIZOLE
     Indication: Pain
     Dosage: UNK
     Dates: start: 20030101
  26. ISONIAZID [Concomitant]
     Active Substance: ISONIAZID
     Indication: Tuberculosis
     Dosage: 300 MILLIGRAM, QD
     Route: 048
     Dates: start: 20110216, end: 20110416
  27. ISONIAZID [Concomitant]
     Active Substance: ISONIAZID
     Dosage: 300 MILLIGRAM, QD
     Route: 048
     Dates: start: 20140303, end: 20141203
  28. SPIRIVA [Concomitant]
     Active Substance: TIOTROPIUM BROMIDE MONOHYDRATE
     Indication: Tuberculosis
     Dosage: 18 MICROGRAM, QD
     Route: 055
     Dates: end: 20190603
  29. MOXIFLOXACIN [Concomitant]
     Active Substance: MOXIFLOXACIN
     Indication: Tuberculosis
     Dosage: 400 MILLIGRAM, QD
     Route: 048
     Dates: start: 20150320, end: 20150519
  30. PREZISTA [Concomitant]
     Active Substance: DARUNAVIR ETHANOLATE
     Indication: HIV infection
     Dosage: 800 MILLIGRAM, QD
     Route: 048
  31. OXIS [Concomitant]
     Active Substance: FORMOTEROL FUMARATE
     Indication: Tuberculosis
     Dosage: 6.0 MICROGRAM, QD
     Route: 055
     Dates: start: 20120717, end: 2017
  32. RIFABUTIN [Concomitant]
     Active Substance: RIFABUTIN
     Indication: Tuberculosis
     Dosage: 150 MILLIGRAM, 1/WEEK
     Route: 048
     Dates: start: 20140303, end: 20141203
  33. ETHAMBUTOL [Concomitant]
     Active Substance: ETHAMBUTOL HYDROCHLORIDE
     Indication: Tuberculosis
     Dosage: 1200 MILLIGRAM, QD
     Route: 048
     Dates: start: 20140303, end: 20140519
  34. NOXAFIL [Concomitant]
     Active Substance: POSACONAZOLE
     Indication: Aspergillus infection
     Dosage: 5 MILLILITER
     Route: 048
     Dates: start: 20150611, end: 20150807
  35. SULTAMICILLIN TOSYLATE [Concomitant]
     Active Substance: SULTAMICILLIN TOSYLATE
     Indication: Aspergillus infection
     Dosage: UNK
     Route: 048
     Dates: start: 20150611, end: 20150625
  36. AZITHROMYCIN [Concomitant]
     Active Substance: AZITHROMYCIN
     Indication: Aspergillus infection
     Dosage: 250 MILLIGRAM
     Route: 048
     Dates: start: 20150611, end: 20150625
  37. FERROUS GLUCONATE [Concomitant]
     Active Substance: FERROUS GLUCONATE
     Dosage: UNK
     Route: 048
     Dates: start: 20120717
  38. FORMOTEROL FUMARATE [Concomitant]
     Active Substance: FORMOTEROL FUMARATE
     Indication: Tuberculosis
     Dosage: UNK
     Route: 055
     Dates: start: 20170101
  39. PIPERACILLIN [Concomitant]
     Active Substance: PIPERACILLIN
     Indication: Acute kidney injury
     Dosage: UNK
     Route: 048
     Dates: start: 20200102
  40. TAZOBACTAM [Concomitant]
     Active Substance: TAZOBACTAM
     Indication: Acute kidney injury
     Dosage: UNK
     Route: 048
     Dates: start: 20200102
  41. UNSPECIFIED INGREDIENT [Concomitant]
     Active Substance: UNSPECIFIED INGREDIENT
     Indication: Gastritis
     Dosage: UNK
     Route: 048
     Dates: start: 20191230
  42. SUCRALFATE [Concomitant]
     Active Substance: SUCRALFATE
     Indication: Gastritis
     Dosage: UNK
     Route: 048
     Dates: start: 20191230
  43. RIFAMPIN [Concomitant]
     Active Substance: RIFAMPIN
     Indication: Tuberculosis
     Dosage: 150 MILLIGRAM, 1/WEEK
     Route: 048
     Dates: start: 20110216, end: 20110416
  44. RIFAMPIN [Concomitant]
     Active Substance: RIFAMPIN
     Dosage: 150 MILLIGRAM, 1/WEEK
     Route: 048
     Dates: start: 20110729

REACTIONS (3)
  - H1N1 influenza [Recovered/Resolved]
  - Pulmonary tuberculosis [Recovered/Resolved]
  - Tuberculosis [Recovered/Resolved]

NARRATIVE: CASE EVENT DATE: 20110208
